APPROVED DRUG PRODUCT: ABACAVIR SULFATE AND LAMIVUDINE
Active Ingredient: ABACAVIR SULFATE; LAMIVUDINE
Strength: EQ 60MG BASE;30MG
Dosage Form/Route: TABLET, FOR SUSPENSION;ORAL
Application: N204311 | Product #001
Applicant: PHARMOBEDIENT CONSULTING LLC
Approved: Dec 22, 2023 | RLD: Yes | RS: No | Type: DISCN